FAERS Safety Report 16662749 (Version 2)
Quarter: 2020Q1

REPORT INFORMATION
  Report Type: Report from Study
  Country: US (occurrence: US)
  Receive Date: 20190802
  Receipt Date: 20200129
  Transmission Date: 20200409
  Serious: No
  Sender: FDA-Public Use
  Company Number: US-EXELIXIS-CABO-19018222

PATIENT
  Sex: Male

DRUGS (12)
  1. ATORVASTATIN [Concomitant]
     Active Substance: ATORVASTATIN
  2. COREG [Concomitant]
     Active Substance: CARVEDILOL
  3. FOLIC ACID. [Concomitant]
     Active Substance: FOLIC ACID
  4. FLAXSEED [Concomitant]
     Active Substance: FLAX SEED
  5. MULTIVITAMINS, COMBINATIONS [Concomitant]
     Active Substance: VITAMINS
  6. OMEPRAZOLE. [Concomitant]
     Active Substance: OMEPRAZOLE
  7. XARELTO [Concomitant]
     Active Substance: RIVAROXABAN
  8. LISINOPRIL. [Concomitant]
     Active Substance: LISINOPRIL
  9. CALCIUM [Concomitant]
     Active Substance: CALCIUM
  10. TORSEMIDE. [Concomitant]
     Active Substance: TORSEMIDE
  11. CABOMETYX [Suspect]
     Active Substance: CABOZANTINIB S-MALATE
     Indication: RENAL CANCER
     Dosage: 60 MG, QD
     Route: 048
     Dates: start: 20181213
  12. FERROUS SULFATE. [Concomitant]
     Active Substance: FERROUS SULFATE

REACTIONS (1)
  - Localised infection [Unknown]
